FAERS Safety Report 5452767-1 (Version None)
Quarter: 2007Q3

REPORT INFORMATION
  Report Type: 
  Country: None (occurrence: None)
  Receive Date: 20070914
  Receipt Date: 20070907
  Transmission Date: 20080115
  Serious: Yes (Other)
  Sender: FDA-Public Use
  Company Number: AR-AMGEN-US243001

PATIENT
  Sex: Female
  Weight: 55.5 kg

DRUGS (2)
  1. ENBREL [Suspect]
     Indication: RHEUMATOID ARTHRITIS
     Route: 058
     Dates: start: 20010304, end: 20070601
  2. FERROUS SULFATE TAB [Concomitant]
     Indication: ANAEMIA
     Route: 065

REACTIONS (2)
  - PNEUMONIA [None]
  - TUBERCULOSIS [None]
